FAERS Safety Report 13674588 (Version 2)
Quarter: 2017Q3

REPORT INFORMATION
  Report Type: Other
  Country: CA (occurrence: CA)
  Receive Date: 20170621
  Receipt Date: 20170718
  Transmission Date: 20171127
  Serious: Yes (Other)
  Sender: FDA-Public Use
  Company Number: CA-APOTEX-2017AP012981

PATIENT
  Age: 81 Year
  Sex: Male

DRUGS (1)
  1. APO-METFORMIN - TAB 500MG [Suspect]
     Active Substance: METFORMIN HYDROCHLORIDE
     Indication: DIABETES MELLITUS
     Dosage: 500 MG, BID
     Route: 048

REACTIONS (2)
  - Diarrhoea [Recovered/Resolved]
  - Product substitution issue [Recovered/Resolved]
